FAERS Safety Report 22597307 (Version 2)
Quarter: 2024Q1

REPORT INFORMATION
  Report Type: Report from Study
  Country: IT (occurrence: IT)
  Receive Date: 20230614
  Receipt Date: 20240105
  Transmission Date: 20240410
  Serious: Yes (Other)
  Sender: FDA-Public Use
  Company Number: IT-CELLTRION INC.-2023IT010829

PATIENT

DRUGS (8)
  1. BEVACIZUMAB [Suspect]
     Active Substance: BEVACIZUMAB
     Indication: Hepatocellular carcinoma
     Dosage: 885 MG
     Route: 042
     Dates: start: 20230404
  2. ATEZOLIZUMAB [Suspect]
     Active Substance: ATEZOLIZUMAB
     Indication: Hepatocellular carcinoma
     Dosage: 1200 MG EVERY 3 WEEKS (ON 04/APR/2023, SHE WAS RECEIVED MOST RECENT DOSE OF STUDY DRUG PRIOR TO AE (
     Route: 042
     Dates: start: 20230427
  3. BETAHISTINE [Concomitant]
     Active Substance: BETAHISTINE
     Dosage: EVERY 1 DAY
     Dates: start: 20230526
  4. RABEPRAZOLE [Concomitant]
     Active Substance: RABEPRAZOLE
     Dosage: EVERY 1 DAY
     Dates: start: 20230526
  5. BISOPROLOL FUMARATE [Concomitant]
     Active Substance: BISOPROLOL FUMARATE
     Dosage: BID
     Dates: start: 20230526
  6. ATORVASTATIN [Concomitant]
     Active Substance: ATORVASTATIN
     Dosage: EVERY 1 DAY
     Dates: start: 20230526
  7. ACETAMINOPHEN [Concomitant]
     Active Substance: ACETAMINOPHEN
     Dosage: UNK
     Dates: start: 20230526
  8. ACARBOSE [Concomitant]
     Active Substance: ACARBOSE
     Dosage: BID
     Dates: start: 20230526

REACTIONS (10)
  - Ascites [Recovered/Resolved]
  - Haematochezia [Not Recovered/Not Resolved]
  - Malaise [Recovered/Resolved]
  - Decreased appetite [Recovered/Resolved]
  - Epistaxis [Recovered/Resolved]
  - Myalgia [Recovered/Resolved]
  - Infusion related reaction [Recovered/Resolved]
  - Stomatitis [Recovered/Resolved]
  - Somnolence [Not Recovered/Not Resolved]
  - Intentional product use issue [Unknown]

NARRATIVE: CASE EVENT DATE: 20230427
